FAERS Safety Report 6492854-2 (Version None)
Quarter: 2009Q4

REPORT INFORMATION
  Report Type: 
  Country: None (occurrence: None)
  Receive Date: 20091214
  Receipt Date: 20091204
  Transmission Date: 20100525
  Serious: Yes (Other)
  Sender: FDA-Public Use
  Company Number: US-SANOFI-AVENTIS-2009SA007257

PATIENT
  Age: 50 Year
  Sex: Male

DRUGS (2)
  1. LANTUS [Suspect]
     Dosage: DOSE:30 UNIT(S)
     Route: 058
     Dates: start: 20090401
  2. APIDRA [Suspect]
     Dosage: 5- 10 UNITS SLIDING SCALE WITH EACH MEAL
     Route: 058
     Dates: start: 20090401, end: 20090801

REACTIONS (1)
  - MYOCARDIAL INFARCTION [None]
